FAERS Safety Report 8180651-1 (Version None)
Quarter: 2012Q1

REPORT INFORMATION
  Report Type: 
  Country: None (occurrence: None)
  Receive Date: 20120302
  Receipt Date: 20120221
  Transmission Date: 20120608
  Serious: Yes (Other)
  Sender: FDA-Public Use
  Company Number: US-SANOFI-AVENTIS-2012SA014074

PATIENT
  Sex: Female

DRUGS (4)
  1. GEFITINIB [Suspect]
     Indication: BREAST CANCER METASTATIC
     Dosage: DOSE MODIFIED TO 250 MG DAILY ON DAY 2-14 OF THE 21 DAY CYCLE
     Route: 048
  2. TRASTUZUMAB [Suspect]
     Indication: BREAST CANCER METASTATIC
     Route: 042
  3. TRASTUZUMAB [Suspect]
     Dosage: CYCLE 1
     Route: 042
  4. DOCETAXEL [Suspect]
     Indication: BREAST CANCER METASTATIC
     Route: 042

REACTIONS (2)
  - PULMONARY TOXICITY [None]
  - DYSPNOEA [None]
